FAERS Safety Report 16162518 (Version 7)
Quarter: 2020Q3

REPORT INFORMATION
  Report Type: Report from Study
  Country: US (occurrence: US)
  Receive Date: 20190405
  Receipt Date: 20200710
  Transmission Date: 20201102
  Serious: Yes (Death, Life-Threatening, Other)
  Sender: FDA-Public Use
  Company Number: PHEH2019US014633

PATIENT
  Age: 16 Year
  Sex: Male
  Weight: 111 kg

DRUGS (3)
  1. KYMRIAH [Suspect]
     Active Substance: TISAGENLECLEUCEL
     Indication: B-CELL TYPE ACUTE LEUKAEMIA
     Dosage: 81.4 %, ONCE/SINGLE (1.1200E7 CELLS/ML)
     Route: 041
     Dates: start: 20190304
  2. FLUDARABINE [Concomitant]
     Active Substance: FLUDARABINE PHOSPHATE
     Indication: CHEMOTHERAPY
     Dosage: UNK
     Route: 065
  3. CYCLOPHOSPHAMIDE. [Concomitant]
     Active Substance: CYCLOPHOSPHAMIDE
     Indication: CHEMOTHERAPY
     Dosage: UNK
     Route: 065

REACTIONS (18)
  - B-cell type acute leukaemia [Fatal]
  - Lung disorder [Unknown]
  - Acute respiratory distress syndrome [Unknown]
  - Neutrophil count decreased [Unknown]
  - Staphylococcal infection [Unknown]
  - Leukocytosis [Fatal]
  - Haemoglobin decreased [Unknown]
  - Drug ineffective [Not Recovered/Not Resolved]
  - Cytokine release syndrome [Recovered/Resolved]
  - Neurotoxicity [Recovered/Resolved]
  - Malignant neoplasm progression [Fatal]
  - Pyrexia [Unknown]
  - Headache [Unknown]
  - Treatment failure [Unknown]
  - Platelet count decreased [Unknown]
  - Hypoxia [Unknown]
  - Acute lymphocytic leukaemia recurrent [Fatal]
  - Cytopenia [Unknown]

NARRATIVE: CASE EVENT DATE: 20190304
